FAERS Safety Report 10030739 (Version 2)
Quarter: 2014Q1

REPORT INFORMATION
  Report Type: Spontaneous
  Country: US (occurrence: US)
  Receive Date: 20140323
  Receipt Date: 20140323
  Transmission Date: 20141002
  Serious: No
  Sender: FDA-Public Use
  Company Number: US-ALLERGAN-1401572US

PATIENT
  Age: 66 Year
  Sex: Female

DRUGS (2)
  1. LATISSE 0.03% [Suspect]
     Indication: GROWTH OF EYELASHES
     Dosage: 2 GTT, QHS
     Route: 061
     Dates: start: 201310, end: 20140122
  2. CLARITIN [Concomitant]
     Indication: SEASONAL ALLERGY
     Dosage: UNK UNK, QD

REACTIONS (1)
  - Skin hyperpigmentation [Not Recovered/Not Resolved]
